FAERS Safety Report 5859145-1 (Version None)
Quarter: 2008Q3

REPORT INFORMATION
  Report Type: 
  Country: None (occurrence: None)
  Receive Date: 20080826
  Receipt Date: 20080826
  Transmission Date: 20090109
  Serious: Yes (Other)
  Sender: FDA-Public Use
  Company Number: None

PATIENT
  Sex: Female
  Weight: 81.1939 kg

DRUGS (1)
  1. RECLAST [Suspect]
     Indication: OSTEOPOROSIS
     Dosage: ACCOURTING TO MY WEIGHT ONCE A YR. AUG 2, 2008
     Route: 042
     Dates: start: 20080802

REACTIONS (6)
  - CONSTIPATION [None]
  - GASTRIC DISORDER [None]
  - HYPOAESTHESIA [None]
  - JOINT STIFFNESS [None]
  - MUSCLE SPASMS [None]
  - SWELLING [None]
